FAERS Safety Report 10144939 (Version 1)
Quarter: 2014Q2

REPORT INFORMATION
  Report Type: Spontaneous
  Country: US (occurrence: US)
  Receive Date: 20140430
  Receipt Date: 20140430
  Transmission Date: 20141212
  Serious: No
  Sender: FDA-Public Use
  Company Number: US-SA-2014SA036233

PATIENT
  Sex: Female

DRUGS (6)
  1. MEPERIDINE HYDROCHLORIDE [Suspect]
     Indication: PRODUCT USED FOR UNKNOWN INDICATION
     Route: 065
  2. RANITIDINE HYDROCHLORIDE [Concomitant]
     Route: 048
  3. PROVENTIL [Concomitant]
  4. VITAMIN D3 [Concomitant]
     Dosage: DOSE:2000 UNIT(S)
     Route: 048
  5. TRIAMCINOLONE ACETONIDE [Concomitant]
  6. LYRICA [Concomitant]
     Route: 048

REACTIONS (1)
  - Drug hypersensitivity [Unknown]
